FAERS Safety Report 16929880 (Version 2)
Quarter: 2019Q4

REPORT INFORMATION
  Report Type: Spontaneous
  Country: FR (occurrence: FR)
  Receive Date: 20191017
  Receipt Date: 20191028
  Transmission Date: 20200122
  Serious: Yes (Other)
  Sender: FDA-Public Use
  Company Number: FR-JNJFOC-20191012697

PATIENT
  Age: 7 Year
  Sex: Female

DRUGS (6)
  1. AMBISOME [Suspect]
     Active Substance: AMPHOTERICIN B
     Route: 065
  2. REMICADE [Suspect]
     Active Substance: INFLIXIMAB
     Indication: PRODUCT USED FOR UNKNOWN INDICATION
     Dosage: UNK
     Route: 042
  3. REMICADE [Suspect]
     Active Substance: INFLIXIMAB
     Route: 042
     Dates: start: 200401
  4. REMICADE [Suspect]
     Active Substance: INFLIXIMAB
     Dosage: INJECTION RATE CHANGED TO EVERY 8 WEEKS
     Route: 042
     Dates: start: 200707
  5. METHOTREXATE SODIUM. [Suspect]
     Active Substance: METHOTREXATE SODIUM
     Route: 048
     Dates: start: 200803
  6. AMBISOME [Suspect]
     Active Substance: AMPHOTERICIN B
     Dosage: 6 INJECTIONS
     Route: 065

REACTIONS (1)
  - Visceral leishmaniasis [Not Recovered/Not Resolved]

NARRATIVE: CASE EVENT DATE: 200501
